FAERS Safety Report 11045237 (Version 2)
Quarter: 2015Q2

REPORT INFORMATION
  Report Type: Spontaneous
  Country: DE (occurrence: DE)
  Receive Date: 20150417
  Receipt Date: 20150529
  Transmission Date: 20150821
  Serious: Yes (Hospitalization, Other)
  Sender: FDA-Public Use
  Company Number: DE-ABBVIE-15P-062-1375869-00

PATIENT
  Age: 68 Year
  Sex: Female

DRUGS (1)
  1. DUODOPA [Suspect]
     Active Substance: CARBIDOPA\LEVODOPA
     Indication: PRODUCT USED FOR UNKNOWN INDICATION
     Dosage: MD 2.0ML?CRD 2.8ML/H 7:30AM TO 22:30PM?ED 1.5ML 3X PER DAY, LOCK LEVEL: LLO
     Route: 050
     Dates: start: 200608

REACTIONS (11)
  - Decreased vibratory sense [Unknown]
  - Abasia [Unknown]
  - Dysstasia [Unknown]
  - Hypoaesthesia [Unknown]
  - Knee arthroplasty [Unknown]
  - Dyskinesia [Unknown]
  - Incorrect route of drug administration [Recovered/Resolved]
  - Device kink [Recovered/Resolved]
  - On and off phenomenon [Unknown]
  - Knee arthroplasty [Unknown]
  - Joint stiffness [Unknown]

NARRATIVE: CASE EVENT DATE: 200906
